FAERS Safety Report 4648301-6 (Version None)
Quarter: 2005Q2

REPORT INFORMATION
  Report Type: 
  Country: None (occurrence: None)
  Receive Date: 20050331
  Receipt Date: 20041227
  Transmission Date: 20051028
  Serious: No
  Sender: FDA-Public Use
  Company Number: 04P-163-0284687-00

PATIENT
  Age: 51 Year
  Sex: Female
  Weight: 95.2554 kg

DRUGS (9)
  1. HUMIRA [Suspect]
     Indication: RHEUMATOID ARTHRITIS
     Dosage: 40 MG, 1 IN 2 WK, SUBCUTANEOUS
     Route: 058
     Dates: start: 20040101
  2. NABUMETONE [Concomitant]
  3. PREDNISONE TAB [Concomitant]
  4. LEFLUNOMIDE [Concomitant]
  5. HYDROCHLOROTHIAZIDE [Concomitant]
  6. RABEPRAZOLE SODIUM [Concomitant]
  7. TRAMADOL HCL [Concomitant]
  8. LORATADINE [Concomitant]
  9. RAMIPRIL [Concomitant]

REACTIONS (1)
  - INJECTION SITE PAIN [None]
